FAERS Safety Report 6239449-3 (Version None)
Quarter: 2009Q2

REPORT INFORMATION
  Report Type: 
  Country: None (occurrence: None)
  Receive Date: 20090618
  Receipt Date: 20090618
  Transmission Date: 20091009
  Serious: Yes (Other)
  Sender: FDA-Public Use
  Company Number: None

PATIENT
  Age: 52 Year
  Sex: Male
  Weight: 88.4514 kg

DRUGS (1)
  1. ZICAM [Suspect]

REACTIONS (1)
  - NO ADVERSE EVENT [None]
